FAERS Safety Report 20085572 (Version 1)
Quarter: 2021Q4

REPORT INFORMATION
  Report Type: Spontaneous
  Country: NL (occurrence: NL)
  Receive Date: 20211118
  Receipt Date: 20211118
  Transmission Date: 20220303
  Serious: Yes (Death)
  Sender: FDA-Public Use
  Company Number: NL-002147023-NVSC2021NL091448

PATIENT
  Sex: Female

DRUGS (1)
  1. COLCHICINE [Suspect]
     Active Substance: COLCHICINE
     Indication: Pain in extremity
     Dosage: UNK
     Route: 065

REACTIONS (3)
  - Diarrhoea [Fatal]
  - Product use in unapproved indication [Unknown]
  - Off label use [Unknown]
